FAERS Safety Report 8596062-0 (Version None)
Quarter: 2012Q3

REPORT INFORMATION
  Report Type: 
  Country: None (occurrence: None)
  Receive Date: 20120815
  Receipt Date: 20120810
  Transmission Date: 20120928
  Serious: Yes (Other)
  Sender: FDA-Public Use
  Company Number: US-ABBOTT-11P-163-0882540-00

PATIENT
  Sex: Female
  Weight: 60 kg

DRUGS (3)
  1. MULTI-VITAMINS [Concomitant]
     Indication: PRODUCT USED FOR UNKNOWN INDICATION
     Dates: start: 20110901
  2. HUMIRA [Suspect]
     Indication: CROHN'S DISEASE
     Route: 058
     Dates: start: 20110801, end: 20120701
  3. HUMIRA [Suspect]
     Dates: start: 20070101, end: 20100801

REACTIONS (11)
  - INTRAUTERINE INFECTION [None]
  - GASTROINTESTINAL INFLAMMATION [None]
  - ENDOMETRITIS [None]
  - PYREXIA [None]
  - GENERAL SYMPTOM [None]
  - ABORTION INFECTED [None]
  - STREPTOCOCCUS TEST POSITIVE [None]
  - ABDOMINAL INFECTION [None]
  - ANAL FISSURE [None]
  - ABORTION SPONTANEOUS [None]
  - WOUND DRAINAGE [None]
